FAERS Safety Report 17895684 (Version 2)
Quarter: 2020Q3

REPORT INFORMATION
  Report Type: Report from Study
  Country: US (occurrence: US)
  Receive Date: 20200615
  Receipt Date: 20200813
  Transmission Date: 20201103
  Serious: Yes (Other)
  Sender: FDA-Public Use
  Company Number: US-BIOGEN-2020BI00883919

PATIENT
  Sex: Female

DRUGS (3)
  1. TECFIDERA [Suspect]
     Active Substance: DIMETHYL FUMARATE
     Route: 065
     Dates: start: 20140521
  2. TECFIDERA [Suspect]
     Active Substance: DIMETHYL FUMARATE
     Route: 048
     Dates: start: 20140529
  3. TECFIDERA [Suspect]
     Active Substance: DIMETHYL FUMARATE
     Indication: MULTIPLE SCLEROSIS
     Route: 048
     Dates: start: 20140521, end: 20140528

REACTIONS (11)
  - Gastrointestinal disorder [Unknown]
  - Dysstasia [Unknown]
  - Upper limb fracture [Recovered/Resolved]
  - Impaired healing [Unknown]
  - Fall [Recovered/Resolved]
  - Gait inability [Unknown]
  - Drug ineffective [Unknown]
  - Spinal fracture [Recovered/Resolved]
  - Pain in extremity [Unknown]
  - Foot fracture [Recovered/Resolved]
  - Multiple sclerosis [Unknown]

NARRATIVE: CASE EVENT DATE: 2014
